FAERS Safety Report 7647396-5 (Version None)
Quarter: 2011Q3

REPORT INFORMATION
  Report Type: 
  Country: None (occurrence: None)
  Receive Date: 20110801
  Receipt Date: 20110726
  Transmission Date: 20111222
  Serious: No
  Sender: FDA-Public Use
  Company Number: US-TEVA-292578USA

PATIENT
  Sex: Male

DRUGS (6)
  1. COPAXONE [Suspect]
     Indication: MULTIPLE SCLEROSIS
     Route: 058
     Dates: start: 20110201
  2. VERAPAMIL [Concomitant]
  3. HYDROCHLOROTHIAZIDE [Concomitant]
  4. ROPINIROLE [Concomitant]
  5. ERGOCALCIFEROL [Concomitant]
  6. ROSUVASTATIN [Concomitant]

REACTIONS (3)
  - HYPERHIDROSIS [None]
  - SKIN HYPERPIGMENTATION [None]
  - VERTIGO [None]
